FAERS Safety Report 5956435-9 (Version None)
Quarter: 2008Q4

REPORT INFORMATION
  Report Type: 
  Country: None (occurrence: None)
  Receive Date: 20081114
  Receipt Date: 20081114
  Transmission Date: 20090506
  Serious: Yes (Other)
  Sender: FDA-Public Use
  Company Number: None

PATIENT
  Age: 54 Year
  Sex: Male
  Weight: 74.8435 kg

DRUGS (1)
  1. CARISOPRODOL [Suspect]
     Indication: INSOMNIA
     Dosage: ONE 2XDAILYAS NEEDED PO
     Route: 048
     Dates: start: 20020502, end: 20081113

REACTIONS (3)
  - DRUG INEFFECTIVE [None]
  - INSOMNIA [None]
  - PRODUCT QUALITY ISSUE [None]
